FAERS Safety Report 5928909-8 (Version None)
Quarter: 2008Q3

REPORT INFORMATION
  Report Type: 
  Country: None (occurrence: None)
  Receive Date: 20080924
  Receipt Date: 20071103
  Transmission Date: 20090109
  Serious: Yes (Other)
  Sender: FDA-Public Use
  Company Number: PHEH2007US14471

PATIENT

DRUGS (1)
  1. LOPRESSOR [Suspect]
     Indication: VENTRICULAR EXTRASYSTOLES
     Dosage: 50 MG, QD
     Dates: start: 20070601

REACTIONS (2)
  - FATIGUE [None]
  - VENTRICULAR EXTRASYSTOLES [None]
